FAERS Safety Report 19507651 (Version 1)
Quarter: 2021Q3

REPORT INFORMATION
  Report Type: Spontaneous
  Country: DE (occurrence: DE)
  Receive Date: 20210708
  Receipt Date: 20210708
  Transmission Date: 20211014
  Serious: Yes (Hospitalization, Other)
  Sender: FDA-Public Use
  Company Number: DE-009507513-2107DEU000995

PATIENT
  Age: 73 Year
  Sex: Male

DRUGS (1)
  1. DELSTRIGO [Suspect]
     Active Substance: DORAVIRINE\LAMIVUDINE\TENOFOVIR DISOPROXIL FUMARATE
     Route: 048

REACTIONS (3)
  - Gastrointestinal tube insertion [Unknown]
  - Adverse event [Unknown]
  - Enteral nutrition [Unknown]

NARRATIVE: CASE EVENT DATE: 2021
